FAERS Safety Report 20750039 (Version 1)
Quarter: 2022Q2

REPORT INFORMATION
  Report Type: Spontaneous
  Country: US (occurrence: US)
  Receive Date: 20220426
  Receipt Date: 20220426
  Transmission Date: 20220721
  Serious: Yes (Other)
  Sender: FDA-Public Use
  Company Number: US-BRISTOL-MYERS SQUIBB COMPANY-2022-026368

PATIENT
  Age: 70 Year
  Sex: Female

DRUGS (2)
  1. REVLIMID [Suspect]
     Active Substance: LENALIDOMIDE
     Indication: Product used for unknown indication
     Dosage: UNK
     Route: 065
  2. REVLIMID [Suspect]
     Active Substance: LENALIDOMIDE
     Dosage: QUANTITY: 21?SHE STARTED THERAPY BACK IN MAY 2017
     Route: 065
     Dates: start: 2017

REACTIONS (4)
  - Fatigue [Unknown]
  - Diarrhoea [Unknown]
  - Pollakiuria [Unknown]
  - Neuropathy peripheral [Unknown]
